FAERS Safety Report 19584580 (Version 2)
Quarter: 2021Q3

REPORT INFORMATION
  Report Type: Spontaneous
  Country: JP (occurrence: JP)
  Receive Date: 20210720
  Receipt Date: 20210810
  Transmission Date: 20211014
  Serious: Yes (Hospitalization)
  Sender: FDA-Public Use
  Company Number: JP-TAKEDA-2021TUS043421

PATIENT
  Age: 52 Year
  Sex: Male

DRUGS (1)
  1. 405 (LANTHANUM CARBONATE) [Suspect]
     Active Substance: LANTHANUM CARBONATE
     Indication: PRODUCT USED FOR UNKNOWN INDICATION
     Dosage: 3 DOSAGE FORM, TID
     Route: 048

REACTIONS (1)
  - Hospitalisation [Unknown]
